FAERS Safety Report 14827287 (Version 1)
Quarter: 2018Q2

REPORT INFORMATION
  Report Type: Spontaneous
  Country: US (occurrence: US)
  Receive Date: 20180405
  Receipt Date: 20180405
  Transmission Date: 20180711
  Serious: Yes (Life-Threatening, Other)
  Sender: FDA-Public Use
  Company Number: None

PATIENT
  Age: 25 Year
  Sex: Male
  Weight: 94.8 kg

DRUGS (8)
  1. VALPROATE IVPB [Concomitant]
  2. LEVETIRACETAM IVPB [Concomitant]
  3. LOVENOX [Concomitant]
     Active Substance: ENOXAPARIN SODIUM
  4. FAMOTIDINE. [Concomitant]
     Active Substance: FAMOTIDINE
  5. GABAPENTIN ORAL SOLUTION [Concomitant]
     Active Substance: GABAPENTIN
  6. TIZANIDINE. [Suspect]
     Active Substance: TIZANIDINE
     Indication: MUSCLE SPASTICITY
     Route: 048
  7. ALBUTEROL NEBULIZER [Concomitant]
     Active Substance: ALBUTEROL
  8. ZIPRASIDONE TABLET [Concomitant]

REACTIONS (1)
  - Sinus bradycardia [None]

NARRATIVE: CASE EVENT DATE: 20180207
